FAERS Safety Report 8047433-2 (Version None)
Quarter: 2012Q1

REPORT INFORMATION
  Report Type: 
  Country: None (occurrence: None)
  Receive Date: 20120116
  Receipt Date: 20120109
  Transmission Date: 20120608
  Serious: Yes (Hospitalization)
  Sender: FDA-Public Use
  Company Number: US-ABBOTT-12P-163-0890807-00

PATIENT
  Sex: Female
  Weight: 102.15 kg

DRUGS (2)
  1. HUMIRA [Suspect]
     Dates: start: 20120101
  2. HUMIRA [Suspect]
     Indication: CROHN'S DISEASE
     Dates: start: 20110701, end: 20120101

REACTIONS (5)
  - MUSCLE SPASMS [None]
  - FLUID INTAKE REDUCED [None]
  - CROHN'S DISEASE [None]
  - BACK PAIN [None]
  - HYPOPHAGIA [None]
